FAERS Safety Report 4997748-7 (Version None)
Quarter: 2006Q2

REPORT INFORMATION
  Report Type: 
  Country: None (occurrence: None)
  Receive Date: 20060510
  Receipt Date: 20060428
  Transmission Date: 20061013
  Serious: Yes (Hospitalization)
  Sender: FDA-Public Use
  Company Number: PHBS2006JP06418

PATIENT

DRUGS (1)
  1. TEGRETOL [Suspect]
     Route: 065

REACTIONS (2)
  - ENURESIS [None]
  - URINARY INCONTINENCE [None]
